FAERS Safety Report 5034517-6 (Version None)
Quarter: 2006Q2

REPORT INFORMATION
  Report Type: 
  Country: None (occurrence: None)
  Receive Date: 20060623
  Receipt Date: 20060623
  Transmission Date: 20061013
  Serious: Yes (Life-Threatening, Hospitalization, Disabling)
  Sender: FDA-Public Use
  Company Number: None

PATIENT
  Age: 87 Year
  Sex: Female

DRUGS (3)
  1. CLARITHROMYCIN [Suspect]
     Indication: HELICOBACTER INFECTION
     Dosage: 500 MG BID PO
     Route: 048
     Dates: start: 20060616, end: 20060619
  2. CLARITHROMYCIN [Suspect]
     Indication: SYSTEMIC ANTIBACTERIAL THERAPY
     Dosage: 500 MG BID PO
     Route: 048
     Dates: start: 20060616, end: 20060619
  3. VERAPAMIL [Suspect]
     Indication: HYPERTENSION
     Dosage: 180 MG BID PO
     Route: 048

REACTIONS (6)
  - BRADYCARDIA [None]
  - DRUG INTERACTION [None]
  - HELICOBACTER INFECTION [None]
  - METABOLIC ACIDOSIS [None]
  - RENAL FAILURE ACUTE [None]
  - RESPIRATORY FAILURE [None]
